FAERS Safety Report 9613205 (Version 2)
Quarter: 2019Q1

REPORT INFORMATION
  Report Type: Spontaneous
  Country: FR (occurrence: FR)
  Receive Date: 20131010
  Receipt Date: 20190212
  Transmission Date: 20190418
  Serious: Yes (Hospitalization, Other)
  Sender: FDA-Public Use
  Company Number: FR-ABBVIE-13P-056-1156066-00

PATIENT
  Age: 84 Year
  Sex: Female
  Weight: 91 kg

DRUGS (17)
  1. FEMARA [Concomitant]
     Active Substance: LETROZOLE
     Indication: PRODUCT USED FOR UNKNOWN INDICATION
  2. AMAREL [Concomitant]
     Active Substance: GLIMEPIRIDE
     Indication: PRODUCT USED FOR UNKNOWN INDICATION
  3. ORBENINE [Suspect]
     Active Substance: CLOXACILLIN SODIUM
     Indication: TACHYCARDIA
  4. RISPERDAL [Suspect]
     Active Substance: RISPERIDONE
     Indication: PRODUCT USED FOR UNKNOWN INDICATION
     Route: 048
     Dates: start: 20130724, end: 20130828
  5. PREVISCAN [Concomitant]
     Indication: PRODUCT USED FOR UNKNOWN INDICATION
  6. ORBENINE [Suspect]
     Active Substance: CLOXACILLIN SODIUM
     Indication: JOINT SWELLING
     Route: 042
  7. ORBENINE [Suspect]
     Active Substance: CLOXACILLIN SODIUM
     Indication: ERYTHEMA
  8. LEVOTHYROX [Concomitant]
     Active Substance: LEVOTHYROXINE
     Indication: PRODUCT USED FOR UNKNOWN INDICATION
  9. ORBENINE [Suspect]
     Active Substance: CLOXACILLIN SODIUM
     Indication: ARTHRALGIA
     Route: 042
     Dates: start: 20130824, end: 20130828
  10. ORBENINE [Suspect]
     Active Substance: CLOXACILLIN SODIUM
     Indication: PYREXIA
  11. ANAFRANIL [Concomitant]
     Active Substance: CLOMIPRAMINE HYDROCHLORIDE
     Indication: PRODUCT USED FOR UNKNOWN INDICATION
  12. DEPAKOTE [Suspect]
     Active Substance: DIVALPROEX SODIUM
     Indication: PRODUCT USED FOR UNKNOWN INDICATION
     Route: 048
  13. INIPOMP [Suspect]
     Active Substance: PANTOPRAZOLE SODIUM
     Indication: PRODUCT USED FOR UNKNOWN INDICATION
     Route: 048
     Dates: end: 20130828
  14. SERESTA [Concomitant]
     Active Substance: OXAZEPAM
     Indication: PRODUCT USED FOR UNKNOWN INDICATION
  15. SPECIAFOLDINE [Concomitant]
     Active Substance: FOLIC ACID
     Indication: PRODUCT USED FOR UNKNOWN INDICATION
  16. ATARAX [Concomitant]
     Active Substance: HYDROXYZINE HYDROCHLORIDE
     Indication: PRODUCT USED FOR UNKNOWN INDICATION
  17. TAHOR [Concomitant]
     Active Substance: ATORVASTATIN CALCIUM
     Indication: PRODUCT USED FOR UNKNOWN INDICATION

REACTIONS (4)
  - Urinary retention [Recovered/Resolved]
  - Somnolence [Recovered/Resolved]
  - Acute kidney injury [Recovering/Resolving]
  - Creatinine renal clearance abnormal [Recovering/Resolving]

NARRATIVE: CASE EVENT DATE: 201308
